FAERS Safety Report 4666332-7 (Version None)
Quarter: 2005Q2

REPORT INFORMATION
  Report Type: 
  Country: None (occurrence: None)
  Receive Date: 20050518
  Receipt Date: 20050509
  Transmission Date: 20051028
  Serious: Yes (Other)
  Sender: FDA-Public Use
  Company Number: HQWYE622910MAY05

PATIENT
  Age: 65 Year
  Sex: Female

DRUGS (1)
  1. DRISTAN SINUS (IBUPROFEN/PSEUDOEPHEDRINE HYDROCHLORIDE, CAPLET) [Suspect]
     Indication: HEADACHE
     Dosage: 1 TO 2 TABLETS AS NEEDED, ORAL
     Route: 048
     Dates: start: 20050501, end: 20050501

REACTIONS (5)
  - CRYING [None]
  - DRUG INEFFECTIVE [None]
  - EMOTIONAL DISORDER [None]
  - PAIN [None]
  - SUICIDAL IDEATION [None]
